FAERS Safety Report 4913379-9 (Version None)
Quarter: 2006Q1

REPORT INFORMATION
  Report Type: 
  Country: None (occurrence: None)
  Receive Date: 20060210
  Receipt Date: 20060207
  Transmission Date: 20060701
  Serious: Yes (Hospitalization)
  Sender: FDA-Public Use
  Company Number: B0409378A

PATIENT
  Age: 18 Month
  Sex: Male
  Weight: 14.9687 kg

DRUGS (2)
  1. AUGMENTIN '125' [Suspect]
     Indication: PYREXIA
     Dosage: ORAL
     Route: 048
     Dates: start: 20060107, end: 20060109
  2. ACETAMINOPHEN [Concomitant]

REACTIONS (8)
  - ALANINE AMINOTRANSFERASE INCREASED [None]
  - ANOREXIA [None]
  - ASPARTATE AMINOTRANSFERASE INCREASED [None]
  - DIARRHOEA [None]
  - EPSTEIN-BARR VIRUS ANTIBODY POSITIVE [None]
  - GINGIVITIS [None]
  - RASH [None]
  - STOMATITIS [None]
